FAERS Safety Report 25791695 (Version 2)
Quarter: 2025Q3

REPORT INFORMATION
  Report Type: Report from Study
  Country: GB (occurrence: GB)
  Receive Date: 20250911
  Receipt Date: 20250916
  Transmission Date: 20251021
  Serious: Yes (Other)
  Sender: ABBVIE
  Company Number: GB-ABBVIE-6452525

PATIENT
  Age: 24 Year
  Sex: Male

DRUGS (1)
  1. SKYRIZI [Suspect]
     Active Substance: RISANKIZUMAB-RZAA
     Indication: Crohn^s disease
     Route: 058
     Dates: start: 20250228, end: 20250617

REACTIONS (5)
  - Fistula [Unknown]
  - Anal abscess [Recovered/Resolved]
  - Device leakage [Unknown]
  - Injection site erythema [Unknown]
  - Injection site swelling [Unknown]
